FAERS Safety Report 16491657 (Version 1)
Quarter: 2019Q2

REPORT INFORMATION
  Report Type: Report from Study
  Country: CA (occurrence: CA)
  Receive Date: 20190628
  Receipt Date: 20190628
  Transmission Date: 20190711
  Serious: Yes (Other)
  Sender: FDA-Public Use
  Company Number: CA-AMREGENT-20191316

PATIENT
  Age: 18 Year
  Sex: Female

DRUGS (9)
  1. ADVAIR HFA [Concomitant]
     Active Substance: FLUTICASONE PROPIONATE\SALMETEROL XINAFOATE
     Dosage: 1 DOSAGE FORMS(2 EVERY 1 DAYS)
     Route: 065
  2. PROTOPIC [Concomitant]
     Active Substance: TACROLIMUS
     Dosage: UNKNOWN
     Route: 061
  3. DEXIRON (IRON DEXTRAN INJECTION, USP) (0134C) [Suspect]
     Active Substance: IRON DEXTRAN
     Dosage: 1 DOSAGE FORMS(1 EVERY 1 DAYS)
     Route: 065
  4. OMALIZUMAB. [Suspect]
     Active Substance: OMALIZUMAB
     Dosage: UNKNOWN
     Route: 058
  5. VENTOLIN [Concomitant]
     Active Substance: ALBUTEROL SULFATE
     Dosage: UNKNOWN
     Route: 065
  6. METHOTREXATE. [Suspect]
     Active Substance: METHOTREXATE
     Dosage: UNKNOWN
     Route: 065
  7. MEFENAMIC ACID. [Concomitant]
     Active Substance: MEFENAMIC ACID
     Dosage: UNKNOWN
     Route: 065
  8. SUMATRIPTAN. [Concomitant]
     Active Substance: SUMATRIPTAN
     Dosage: 2 EVERY 1 DAYS
     Route: 065
  9. FOLIC ACID. [Concomitant]
     Active Substance: FOLIC ACID
     Dosage: UNKNOWN
     Route: 065

REACTIONS (19)
  - Oropharyngeal pain [Unknown]
  - Pyrexia [Unknown]
  - Pruritus [Unknown]
  - Rhinorrhoea [Unknown]
  - Cough [Unknown]
  - Gastrooesophageal reflux disease [Unknown]
  - Injection site pain [Unknown]
  - Insomnia [Unknown]
  - Injection site erythema [Unknown]
  - Nasal congestion [Unknown]
  - Abdominal pain upper [Unknown]
  - Therapeutic response decreased [Unknown]
  - Throat tightness [Unknown]
  - Influenza [Unknown]
  - Urticaria [Unknown]
  - Bronchitis [Unknown]
  - Chest pain [Unknown]
  - Tension headache [Unknown]
  - Dyspnoea [Unknown]
